FAERS Safety Report 5038268-3 (Version None)
Quarter: 2006Q2

REPORT INFORMATION
  Report Type: 
  Country: None (occurrence: None)
  Receive Date: 20060628
  Receipt Date: 20060628
  Transmission Date: 20061013
  Serious: Yes (Hospitalization)
  Sender: FDA-Public Use
  Company Number: None

PATIENT
  Sex: Female
  Weight: 23.1334 kg

DRUGS (13)
  1. FLUDARABINE [Suspect]
     Indication: ACUTE MYELOID LEUKAEMIA
     Dosage: 48 DAILY IV
     Route: 042
     Dates: start: 20060328, end: 20060401
  2. MELPAHLAN [Suspect]
     Dosage: TIMES ONE IV
     Route: 042
     Dates: start: 20060402, end: 20060402
  3. CAMPATH [Concomitant]
  4. FOLIC ACID [Concomitant]
  5. NEUPOGEN [Concomitant]
  6. LASIX [Concomitant]
  7. MULTI-VITAMIN [Concomitant]
  8. CASPOFUNGIN [Concomitant]
  9. ACYCLOVIR [Concomitant]
  10. VALTREX [Concomitant]
  11. LINAZOLID [Concomitant]
  12. MORPHINE [Concomitant]
  13. PROVERA [Concomitant]

REACTIONS (16)
  - BACTERIAL INFECTION [None]
  - BILE DUCT OBSTRUCTION [None]
  - BILIARY DILATATION [None]
  - BILIRUBIN CONJUGATED INCREASED [None]
  - BLOOD BILIRUBIN INCREASED [None]
  - BLOOD CULTURE POSITIVE [None]
  - GALLBLADDER ENLARGEMENT [None]
  - GAMMA-GLUTAMYLTRANSFERASE INCREASED [None]
  - HAEMOBILIA [None]
  - HAEMOGLOBIN DECREASED [None]
  - HAEMORRHAGE [None]
  - HYPOVOLAEMIC SHOCK [None]
  - POST PROCEDURAL COMPLICATION [None]
  - PROCEDURAL HYPOTENSION [None]
  - SEPTIC SHOCK [None]
  - TRANSAMINASES INCREASED [None]
